FAERS Safety Report 23798052 (Version 1)
Quarter: 2024Q2

REPORT INFORMATION
  Report Type: Report from Study
  Country: US (occurrence: US)
  Receive Date: 20240430
  Receipt Date: 20240430
  Transmission Date: 20240716
  Serious: Yes (Other)
  Sender: FDA-Public Use
  Company Number: US-MYLANLABS-2024M1038684

PATIENT
  Age: 50 Year
  Sex: Female

DRUGS (9)
  1. FLUOROURACIL [Suspect]
     Active Substance: FLUOROURACIL
     Indication: Colorectal cancer metastatic
     Dosage: UNK, FOLFOX AND FOLFIRI REGIMEN
     Route: 065
  2. LEUCOVORIN [Suspect]
     Active Substance: LEUCOVORIN\LEUCOVORIN CALCIUM
     Indication: Colorectal cancer metastatic
     Dosage: UNK, FOLFOX AND FOLFIRI REGIMEN
     Route: 065
  3. OXALIPLATIN [Suspect]
     Active Substance: OXALIPLATIN
     Indication: Colorectal cancer metastatic
     Dosage: UNK, FOLFOX REGIMEN
     Route: 065
  4. IRINOTECAN [Suspect]
     Active Substance: IRINOTECAN
     Indication: Colorectal cancer metastatic
     Dosage: UNK, FOLFIRI REGIMEN
     Route: 065
  5. COBIMETINIB [Concomitant]
     Active Substance: COBIMETINIB
     Indication: Colorectal cancer metastatic
     Dosage: UNK
     Route: 065
  6. ATEZOLIZUMAB [Concomitant]
     Active Substance: ATEZOLIZUMAB
     Indication: Colorectal cancer metastatic
     Dosage: UNK
     Route: 065
  7. IPILIMUMAB [Concomitant]
     Active Substance: IPILIMUMAB
     Indication: Colorectal cancer metastatic
     Dosage: UNK
     Route: 065
  8. TRAMETINIB [Concomitant]
     Active Substance: TRAMETINIB
     Indication: Colorectal cancer metastatic
     Dosage: UNK
     Route: 065
  9. NIVOLUMAB [Concomitant]
     Active Substance: NIVOLUMAB
     Indication: Colorectal cancer metastatic
     Dosage: UNK
     Route: 065

REACTIONS (2)
  - Thyroiditis [Unknown]
  - Pericardial effusion [Unknown]
